FAERS Safety Report 8845398 (Version 1)
Quarter: 2012Q4

REPORT INFORMATION
  Report Type: 
  Country: US (occurrence: US)
  Receive Date: 20121017
  Receipt Date: 20121017
  Transmission Date: 20130627
  Serious: No
  Sender: FDA-Public Use
  Company Number: US-TEVA-357674USA

PATIENT
  Sex: Male

DRUGS (2)
  1. TREANDA [Suspect]
     Indication: B-CELL LYMPHOMA
  2. ALLOPURINOL [Suspect]
     Indication: B-CELL LYMPHOMA

REACTIONS (1)
  - Rash generalised [Not Recovered/Not Resolved]
